FAERS Safety Report 25784777 (Version 2)
Quarter: 2025Q3

REPORT INFORMATION
  Report Type: Report from Study
  Country: US (occurrence: US)
  Receive Date: 20250910
  Receipt Date: 20250916
  Transmission Date: 20251021
  Serious: No
  Sender: ACADIA PHARMACEUTICALS
  Company Number: US-ACADIA PHARMACEUTICALS INC.-ACA-2025-TRF-009892

PATIENT
  Sex: Male
  Weight: 45.351 kg

DRUGS (17)
  1. DAYBUE [Suspect]
     Active Substance: TROFINETIDE
     Indication: Rett syndrome
     Dosage: 50 MILLILITER, BID
     Route: 048
     Dates: start: 202501
  2. DAYBUE [Suspect]
     Active Substance: TROFINETIDE
     Route: 048
  3. FERROUS SULFATE [Concomitant]
     Active Substance: FERROUS SULFATE
     Dosage: 220 (44 FE) MG/5ML SOLUTION 7.5 ML AT BEDTIME
  4. QUILLICHEW ER [Concomitant]
     Active Substance: METHYLPHENIDATE HYDROCHLORIDE
     Dosage: CHEW ONE TABLET TID BY MOUTH
     Route: 048
     Dates: start: 20250829
  5. AMOXICILLIN [Concomitant]
     Active Substance: AMOXICILLIN
     Dosage: 1 TABLET ORALLY EVERY 12 HRS
     Route: 048
     Dates: start: 20250908
  6. CLONIDINE HYDROCHLORIDE [Concomitant]
     Active Substance: CLONIDINE HYDROCHLORIDE
     Dosage: 1 TABLET AT BEDTIME
     Route: 048
  7. PROPRANOLOL HYDROCHLORIDE [Concomitant]
     Active Substance: PROPRANOLOL HYDROCHLORIDE
     Indication: Nervous system disorder
     Dosage: ONE TABLET ONCE DAILY IN THE MORNING
     Route: 048
     Dates: start: 20250529
  8. CLONAZEPAM [Concomitant]
     Active Substance: CLONAZEPAM
     Dosage: 1 TABLET TWICE DAILY
     Route: 048
  9. CLOBAZAM [Concomitant]
     Active Substance: CLOBAZAM
     Indication: Nervous system disorder
     Dosage: 2.5 MG/ML, 6 ML BID
     Route: 048
  10. TOPIRAMATE [Concomitant]
     Active Substance: TOPIRAMATE
     Indication: Nervous system disorder
     Dosage: 4 CAPSULES TWICE DAILY
     Route: 048
  11. LEVOCARNITINE [Concomitant]
     Active Substance: LEVOCARNITINE
     Indication: Nervous system disorder
     Dosage: 1 GM/10ML, 7.5 ML TWICE DAILY
     Route: 048
  12. TRIHEXYPHENIDYL HYDROCHLORIDE [Concomitant]
     Active Substance: TRIHEXYPHENIDYL HYDROCHLORIDE
     Indication: Nervous system disorder
     Dosage: 0.4 MG/ML/, TAKE 4ML TWICE DAILY
     Route: 048
  13. FIBER THERAPY (CALCIUM POLYCARBOPHIL) [Concomitant]
     Active Substance: CALCIUM POLYCARBOPHIL
     Route: 048
  14. VITAMINS [Concomitant]
     Active Substance: VITAMINS
     Route: 048
  15. AMOXICILLIN [Concomitant]
     Active Substance: AMOXICILLIN
     Dosage: 400 MG/5 ML, 10 ML BID
     Route: 048
     Dates: start: 20250908
  16. CALCIUM CARBONATE [Concomitant]
     Active Substance: CALCIUM CARBONATE
     Dosage: 1 TABLET TWICE DAILY
     Route: 048
  17. CLONIDINE [Concomitant]
     Active Substance: CLONIDINE
     Indication: Insomnia

REACTIONS (1)
  - Diarrhoea [Not Recovered/Not Resolved]
